FAERS Safety Report 4874987-7 (Version None)
Quarter: 2006Q1

REPORT INFORMATION
  Report Type: 
  Country: None (occurrence: None)
  Receive Date: 20060105
  Receipt Date: 20051223
  Transmission Date: 20060701
  Serious: Yes (Other)
  Sender: FDA-Public Use
  Company Number: 2005-US-01547

PATIENT
  Age: 80 Year
  Sex: Male

DRUGS (4)
  1. ACYCLOVIR [Suspect]
     Indication: HERPES SIMPLEX
     Dosage: 400 MG, BID, ORAL
     Route: 048
  2. LEVOTHYROXINE SODIUM [Concomitant]
  3. CARVEDILOL [Concomitant]
  4. CIPROFLOXACIN [Concomitant]

REACTIONS (1)
  - HEPATIC NEOPLASM [None]
